FAERS Safety Report 10333193 (Version 2)
Quarter: 2014Q3

REPORT INFORMATION
  Report Type: Spontaneous
  Country: GB (occurrence: GB)
  Receive Date: 20140722
  Receipt Date: 20140731
  Transmission Date: 20150326
  Serious: Yes (Other)
  Sender: FDA-Public Use
  Company Number: GB-IPSEN BIOPHARMACEUTICALS, INC.-2014-3627

PATIENT
  Age: 27 Year
  Sex: Female

DRUGS (2)
  1. AZZALURE [Suspect]
     Active Substance: BOTULINUM TOXIN TYPE A
     Indication: SKIN COSMETIC PROCEDURE
     Dosage: 70 UNITS
     Route: 065
     Dates: start: 20140709, end: 20140709
  2. AZZALURE [Suspect]
     Active Substance: BOTULINUM TOXIN TYPE A
     Dosage: NOT REPORTED
     Route: 065
     Dates: start: 20131018, end: 20131018

REACTIONS (9)
  - Hypersensitivity [Not Recovered/Not Resolved]
  - Dizziness [Unknown]
  - Overdose [Unknown]
  - Gastrointestinal disorder [Recovered/Resolved]
  - Dysphagia [Unknown]
  - Malaise [Unknown]
  - Throat tightness [Not Recovered/Not Resolved]
  - Feeling abnormal [Unknown]
  - Hypoaesthesia [Not Recovered/Not Resolved]

NARRATIVE: CASE EVENT DATE: 2013
